FAERS Safety Report 5163567-4 (Version None)
Quarter: 2006Q4

REPORT INFORMATION
  Report Type: 
  Country: None (occurrence: None)
  Receive Date: 20061128
  Receipt Date: 20061128
  Transmission Date: 20070319
  Serious: Yes (Other)
  Sender: FDA-Public Use
  Company Number: None

PATIENT
  Sex: Female

DRUGS (1)
  1. EFFEXOR XR [Suspect]
     Indication: DEPRESSION
     Dosage: 150 MG ONCE A DAY ORAL
     Route: 048
     Dates: start: 20060105, end: 20060818

REACTIONS (13)
  - DIARRHOEA [None]
  - DRUG DEPENDENCE [None]
  - EYE PAIN [None]
  - HALLUCINATION [None]
  - HEADACHE [None]
  - INFLUENZA LIKE ILLNESS [None]
  - INSOMNIA [None]
  - NERVOUS SYSTEM DISORDER [None]
  - SUICIDAL IDEATION [None]
  - TOOTHACHE [None]
  - TREMOR [None]
  - VOMITING [None]
  - WEIGHT DECREASED [None]
